FAERS Safety Report 10068657 (Version 1)
Quarter: 2014Q2

REPORT INFORMATION
  Report Type: Spontaneous
  Country: AU (occurrence: AU)
  Receive Date: 20140409
  Receipt Date: 20140409
  Transmission Date: 20141212
  Serious: Yes (Other)
  Sender: FDA-Public Use
  Company Number: PHHY2014AU041148

PATIENT
  Sex: Female

DRUGS (9)
  1. ZOLEDRONIC ACID [Suspect]
     Dosage: 4 MG, EVERY 4 WEEKS
     Route: 042
  2. LETROZOLE [Suspect]
     Indication: BREAST CANCER METASTATIC
     Route: 042
  3. EVEROLIMUS [Suspect]
  4. TAMOXIFEN [Suspect]
     Dates: start: 201105
  5. TAMOXIFEN [Suspect]
     Dates: start: 201110
  6. EXEMESTANE [Suspect]
  7. CAPECITABINE [Suspect]
     Dosage: UNK , 9 CYCLES
     Dates: start: 201212
  8. TAXOTERE [Suspect]
     Dosage: UNK, 6 CYCLES
  9. LAPATINIB [Suspect]
     Dosage: UNK UKN, 9 CYCLES
     Dates: start: 201212

REACTIONS (17)
  - Lymph node palpable [Recovered/Resolved]
  - Metastases to bone [Unknown]
  - Breast cancer metastatic [Unknown]
  - Tumour marker increased [Unknown]
  - Malignant neoplasm progression [Unknown]
  - Mucosal inflammation [Unknown]
  - Tooth disorder [Unknown]
  - Hyperglycaemia [Unknown]
  - Menopausal symptoms [Unknown]
  - Amenorrhoea [Unknown]
  - Hot flush [Unknown]
  - Blood oestrogen decreased [Unknown]
  - Blood follicle stimulating hormone increased [Unknown]
  - Blood luteinising hormone increased [Unknown]
  - Bone pain [Recovered/Resolved]
  - Fatigue [Unknown]
  - Arthralgia [Recovered/Resolved]
